FAERS Safety Report 11543919 (Version 5)
Quarter: 2018Q3

REPORT INFORMATION
  Report Type: Spontaneous
  Country: CA (occurrence: CA)
  Receive Date: 20150924
  Receipt Date: 20180903
  Transmission Date: 20181010
  Serious: Yes (Other)
  Sender: FDA-Public Use
  Company Number: CA-ROCHE-GNE302571

PATIENT
  Age: 42 Year
  Sex: Female
  Weight: 65 kg

DRUGS (2)
  1. XOLAIR [Suspect]
     Active Substance: OMALIZUMAB
     Indication: ASTHMA
     Dosage: 375 MG, BIW
     Route: 058
     Dates: start: 20070413
  2. XOLAIR [Suspect]
     Active Substance: OMALIZUMAB
     Dosage: 375 MG, BIW
     Route: 058
     Dates: start: 20180821

REACTIONS (10)
  - Heart rate increased [Unknown]
  - Bronchitis [Recovering/Resolving]
  - Systemic lupus erythematosus [Unknown]
  - Blood pressure decreased [Unknown]
  - Fibromyalgia [Unknown]
  - Sinusitis [Unknown]
  - Pneumonia [Recovering/Resolving]
  - Hypersensitivity [Recovering/Resolving]
  - Pyrexia [Unknown]
  - Oropharyngeal pain [Recovering/Resolving]

NARRATIVE: CASE EVENT DATE: 2017
